FAERS Safety Report 22015030 (Version 3)
Quarter: 2023Q1

REPORT INFORMATION
  Report Type: Spontaneous
  Country: US (occurrence: US)
  Receive Date: 20230221
  Receipt Date: 20230309
  Transmission Date: 20230417
  Serious: No
  Sender: FDA-Public Use
  Company Number: US-UNITED THERAPEUTICS-UNT-2023-003857

PATIENT
  Age: 72 Year
  Sex: Male
  Weight: 132.88 kg

DRUGS (9)
  1. REMODULIN [Suspect]
     Active Substance: TREPROSTINIL
     Indication: Pulmonary arterial hypertension
     Dosage: 0.018 ?G/KG, CONTINUING (PHARMACY PRE-FILLED WITH 3 ML PER CASSETTE; PUMP RATE OF 30 MCL PER HOUR)
     Route: 058
  2. REMODULIN [Suspect]
     Active Substance: TREPROSTINIL
     Dosage: 0.021 ?G/KG, CONTINUING (PHARMACY PRE-FILLED WITH 2.8 ML PER CASSETTE. PUMP RATE OF 25 MCL PER HOUR)
     Route: 058
  3. REMODULIN [Suspect]
     Active Substance: TREPROSTINIL
     Dosage: UNK, (PHARMACY PRE-FILLED WITH 3 ML PER CASSETTE. PUMP RATE OF 35 MCL PER HOUR), CONTINUING
     Route: 058
  4. REMODULIN [Suspect]
     Active Substance: TREPROSTINIL
     Dosage: UNK, CONTINUING
     Route: 058
     Dates: start: 20221219
  5. REMODULIN [Suspect]
     Active Substance: TREPROSTINIL
     Indication: Pulmonary arterial hypertension
     Dosage: UNK, CONTINUING (SELF FILLED WITH 3 ML CASSETTE, AT A RATE OF 33 MCL/HR)
     Route: 058
  6. REMODULIN [Suspect]
     Active Substance: TREPROSTINIL
     Indication: Pulmonary arterial hypertension
     Dosage: 0.029 ?G/KG (PRE-FILLED WITH 2.6 ML PER CASSETTE; RATE OF 24 MCL PER HOUR), CONTINUING
     Route: 058
     Dates: start: 202302
  7. REMODULIN [Suspect]
     Active Substance: TREPROSTINIL
     Dosage: UNK, CONTINUING
     Route: 058
     Dates: start: 202302
  8. OPSUMIT [Concomitant]
     Active Substance: MACITENTAN
     Indication: Product used for unknown indication
     Dosage: UNK
     Route: 065
  9. SILDENAFIL [Concomitant]
     Active Substance: SILDENAFIL
     Indication: Product used for unknown indication
     Route: 065

REACTIONS (16)
  - Device malfunction [Unknown]
  - Device malfunction [Unknown]
  - Device infusion issue [Unknown]
  - Device infusion issue [Unknown]
  - Device infusion issue [Unknown]
  - Device infusion issue [Unknown]
  - Device infusion issue [Unknown]
  - Device infusion issue [Unknown]
  - Nausea [Unknown]
  - Diarrhoea [Unknown]
  - Device leakage [Unknown]
  - Device failure [Unknown]
  - Device leakage [Unknown]
  - Device failure [Unknown]
  - Fatigue [Unknown]
  - Insomnia [Unknown]

NARRATIVE: CASE EVENT DATE: 20230215
